FAERS Safety Report 16115505 (Version 1)
Quarter: 2019Q1

REPORT INFORMATION
  Report Type: Spontaneous
  Country: US (occurrence: US)
  Receive Date: 20190325
  Receipt Date: 20190325
  Transmission Date: 20190418
  Serious: Yes (Hospitalization, Other)
  Sender: FDA-Public Use
  Company Number: US-BAXTER-2019BAX005436

PATIENT
  Age: 62 Year
  Sex: Female

DRUGS (5)
  1. CALCITROL [Concomitant]
     Active Substance: CALCITRIOL
     Indication: RHABDOMYOLYSIS
     Dosage: REGULAR
     Route: 048
  2. FUROSEMIDE INJECTION USP [Suspect]
     Active Substance: FUROSEMIDE
     Indication: POLYURIA
     Route: 040
  3. 0.9% SODIUM CHLORIDE INJECTION [Suspect]
     Active Substance: SODIUM CHLORIDE
     Indication: FLUID REPLACEMENT
     Route: 065
  4. LOSARTAN. [Concomitant]
     Active Substance: LOSARTAN
     Indication: PRODUCT USED FOR UNKNOWN INDICATION
     Route: 065
  5. CALCIUM CARBONATE. [Concomitant]
     Active Substance: CALCIUM CARBONATE
     Indication: RHABDOMYOLYSIS
     Dosage: FROM 500 TO 2500 MG
     Route: 048

REACTIONS (1)
  - Hypocalcaemia [Recovered/Resolved]
